FAERS Safety Report 15379120 (Version 3)
Quarter: 2019Q2

REPORT INFORMATION
  Report Type: Spontaneous
  Country: IL (occurrence: IL)
  Receive Date: 20180913
  Receipt Date: 20190520
  Transmission Date: 20190711
  Serious: Yes (Hospitalization)
  Sender: FDA-Public Use
  Company Number: IL-CELGENEUS-ISR-20180903648

PATIENT
  Age: 74 Year
  Sex: Female
  Weight: 57 kg

DRUGS (56)
  1. VENETOCLAX. [Concomitant]
     Active Substance: VENETOCLAX
     Indication: ACUTE MYELOID LEUKAEMIA
     Dosage: 100 MILLIGRAM
     Route: 048
     Dates: start: 20180517, end: 20180517
  2. VENETOCLAX. [Concomitant]
     Active Substance: VENETOCLAX
     Dosage: 400 MILLIGRAM
     Route: 048
     Dates: start: 20180528, end: 20180613
  3. BONDORMIN [Concomitant]
     Active Substance: BROTIZOLAM
     Indication: INSOMNIA
     Dosage: .25 MILLIGRAM
     Route: 048
     Dates: start: 20180517
  4. VANCOMICINA [Concomitant]
     Active Substance: VANCOMYCIN
     Indication: CELLULITIS
     Dosage: 1 GRAM
     Route: 041
     Dates: start: 20180522
  5. VORICONAZOLE. [Concomitant]
     Active Substance: VORICONAZOLE
     Indication: ASPERGILLUS INFECTION
     Dosage: 600 MILLIGRAM
     Route: 048
     Dates: start: 20180614, end: 20180802
  6. FLEET ENEMA [Concomitant]
     Active Substance: SODIUM PHOSPHATE, DIBASIC\SODIUM PHOSPHATE, MONOBASIC
     Indication: HAEMORRHOIDS
     Route: 054
     Dates: start: 20180903, end: 20180903
  7. FUSID [Concomitant]
     Indication: DYSPNOEA
     Dosage: 80 MILLIGRAM
     Route: 041
     Dates: start: 20180817, end: 20180917
  8. RESPRIM [Concomitant]
     Active Substance: SULFAMETHOXAZOLE\TRIMETHOPRIM
     Indication: INFECTION PROPHYLAXIS
     Dosage: 6 TABLET
     Route: 048
     Dates: start: 20180524
  9. CLEXANE [Concomitant]
     Active Substance: ENOXAPARIN SODIUM
     Dosage: 60 MILLIGRAM
     Route: 058
     Dates: start: 20180801
  10. LOSARTAN POTASSIUM AND HYDROCHLOROTHIAZIDE [Concomitant]
     Active Substance: HYDROCHLOROTHIAZIDE\LOSARTAN POTASSIUM
     Indication: HYPERTENSION
     Dosage: 50 MILLIGRAM
     Route: 048
     Dates: start: 20170912
  11. NEUPOGEN [Concomitant]
     Active Substance: FILGRASTIM
     Indication: NEUTROPENIA
     Route: 058
     Dates: start: 20180730, end: 20180917
  12. SIRAN [Concomitant]
     Indication: DYSPNOEA
     Dosage: 600 MILLIGRAM
     Route: 048
     Dates: start: 20180803, end: 20180813
  13. VENTOLIN [Concomitant]
     Active Substance: ALBUTEROL SULFATE
     Indication: DYSPNOEA
     Dosage: 2 MILLILITER
     Route: 055
     Dates: start: 20180803, end: 20180810
  14. PROCTO-GLYVENOL [Concomitant]
     Active Substance: LIDOCAINE HYDROCHLORIDE\TRIBENOSIDE
     Indication: HAEMORRHOIDS
     Dosage: 1 DOSAGE FORMS
     Route: 061
     Dates: start: 20180826, end: 20180917
  15. PERCOCET [Concomitant]
     Active Substance: ACETAMINOPHEN\OXYCODONE HYDROCHLORIDE
     Indication: HAEMORRHOIDS
     Route: 048
     Dates: start: 20180829, end: 20180829
  16. ACAMOL [Concomitant]
     Active Substance: ACETAMINOPHEN
     Indication: PYREXIA
     Route: 048
     Dates: start: 20180522
  17. ELTROXIN [Concomitant]
     Active Substance: LEVOTHYROXINE
     Indication: HYPOTHYROIDISM
     Dosage: 150 MICROGRAM/KILOGRAM
     Route: 048
     Dates: start: 201405
  18. NEXIUM [Concomitant]
     Active Substance: ESOMEPRAZOLE MAGNESIUM
     Indication: NAUSEA
     Route: 048
     Dates: start: 20180801, end: 20180917
  19. HEPARIN [Concomitant]
     Active Substance: HEPARIN SODIUM
     Indication: AORTIC VALVE DISEASE
     Route: 041
     Dates: start: 20180813, end: 20180818
  20. VASODIP [Concomitant]
     Active Substance: LERCANIDIPINE HYDROCHLORIDE
     Indication: HYPERTENSION
     Dosage: 20 MILLIGRAM
     Route: 048
     Dates: start: 20180818, end: 20180821
  21. VENETOCLAX. [Concomitant]
     Active Substance: VENETOCLAX
     Dosage: 50 MILLIGRAM
     Route: 048
     Dates: start: 20180522, end: 20180524
  22. LAXADIN [Concomitant]
     Active Substance: BISACODYL
     Indication: CONSTIPATION
     Route: 048
     Dates: start: 20180517, end: 20180814
  23. VABEN [Concomitant]
     Active Substance: OXAZEPAM
     Indication: ANXIETY
     Dosage: 10 MILLIGRAM
     Route: 048
     Dates: start: 20150209
  24. ERGOCALCIFEROL. [Concomitant]
     Active Substance: ERGOCALCIFEROL
     Indication: VITAMIN D DEFICIENCY
     Dosage: 2000 IU (INTERNATIONAL UNIT)
     Route: 048
     Dates: start: 20180418
  25. SLOW K [Concomitant]
     Active Substance: POTASSIUM CHLORIDE
     Indication: HYPOKALAEMIA
     Dosage: 1.2 GRAM
     Route: 048
     Dates: start: 20180810, end: 20180813
  26. AVILAC [Concomitant]
     Indication: HAEMORRHOIDS
     Route: 048
     Dates: start: 20180830, end: 20180909
  27. AZACITIDINE INJECTABLE [Suspect]
     Active Substance: AZACITIDINE
     Indication: ACUTE MYELOID LEUKAEMIA
     Dosage: 75 MILLIGRAM/SQ. METER
     Route: 058
     Dates: start: 20180517, end: 20180902
  28. VENETOCLAX. [Concomitant]
     Active Substance: VENETOCLAX
     Dosage: 400 MILLIGRAM
     Route: 048
     Dates: start: 20180519, end: 20180521
  29. VENETOCLAX. [Concomitant]
     Active Substance: VENETOCLAX
     Dosage: 50 MILLIGRAM
     Route: 048
     Dates: start: 20180614, end: 20180728
  30. NORMALAX [Concomitant]
     Indication: CONSTIPATION
     Dosage: 2 MILLIGRAM
     Route: 048
     Dates: start: 20170512
  31. A-HYDROCORT [Concomitant]
     Active Substance: HYDROCORTISONE SODIUM SUCCINATE
     Indication: DYSPNOEA
     Dosage: 300 MILLIGRAM
     Route: 041
     Dates: start: 20180804, end: 20180809
  32. PREDNISONE. [Concomitant]
     Active Substance: PREDNISONE
     Indication: DYSPNOEA
     Dosage: 40 MILLIGRAM
     Route: 048
     Dates: start: 20180809, end: 20180916
  33. SOLU-MEDROL [Concomitant]
     Active Substance: METHYLPREDNISOLONE SODIUM SUCCINATE
     Indication: DYSPNOEA
     Route: 041
     Dates: start: 20180812, end: 20180812
  34. MEROPENEM. [Concomitant]
     Active Substance: MEROPENEM
     Indication: SEPSIS
     Dosage: 3 GRAM
     Route: 041
     Dates: start: 20180817, end: 20180819
  35. LYRICA [Concomitant]
     Active Substance: PREGABALIN
     Indication: ANXIETY
     Dosage: 75 MILLIGRAM
     Route: 048
     Dates: start: 20180831, end: 20180917
  36. VENETOCLAX. [Concomitant]
     Active Substance: VENETOCLAX
     Dosage: 200 MILLIGRAM
     Route: 048
     Dates: start: 20180518, end: 20180518
  37. VENETOCLAX. [Concomitant]
     Active Substance: VENETOCLAX
     Dosage: 200 MILLIGRAM
     Route: 048
     Dates: start: 20180525, end: 20180525
  38. VENETOCLAX. [Concomitant]
     Active Substance: VENETOCLAX
     Dosage: 50 MILLIGRAM
     Route: 048
     Dates: start: 20180829, end: 20180901
  39. CLEXANE [Concomitant]
     Active Substance: ENOXAPARIN SODIUM
     Indication: CARDIAC VALVE PROSTHESIS USER
     Dosage: 60 MILLIGRAM
     Route: 058
     Dates: start: 20180508, end: 20180510
  40. FOLIC ACID. [Concomitant]
     Active Substance: FOLIC ACID
     Indication: FOLATE DEFICIENCY
     Dosage: 5 MILLIGRAM
     Route: 048
     Dates: start: 20170219
  41. CALCIUM SANDOZ [Concomitant]
     Active Substance: CALCIUM
     Indication: HYPOCALCAEMIA
     Dosage: 1000 MICROGRAM/KILOGRAM
     Route: 048
     Dates: start: 20180415
  42. A-HYDROCORT [Concomitant]
     Active Substance: HYDROCORTISONE SODIUM SUCCINATE
     Dosage: 300 MILLIGRAM
     Route: 041
     Dates: start: 20180821, end: 20180822
  43. SPASMEX [Concomitant]
     Indication: RENAL FAILURE
     Dosage: 20 MILLIGRAM
     Route: 048
     Dates: start: 20180517
  44. LAXADIN [Concomitant]
     Active Substance: BISACODYL
     Route: 048
     Dates: start: 20180829, end: 20180917
  45. ACAMOL [Concomitant]
     Active Substance: ACETAMINOPHEN
     Indication: SEPSIS
     Route: 048
     Dates: start: 20180803, end: 20180913
  46. FUSID [Concomitant]
     Indication: RENAL FAILURE
     Route: 041
     Dates: start: 20180523
  47. CIPROGIS [Concomitant]
     Indication: SEPSIS
     Dosage: 800 MILLIGRAM
     Route: 041
     Dates: start: 20180819, end: 20180826
  48. VENETOCLAX. [Concomitant]
     Active Substance: VENETOCLAX
     Dosage: 50 MILLIGRAM
     Route: 048
     Dates: start: 20180526, end: 20180527
  49. POW MAGNESIUM [Concomitant]
     Indication: HYPOMAGNESAEMIA
     Dosage: 300 MILLIGRAM
     Route: 048
     Dates: start: 20180517
  50. TAZOCIN [Concomitant]
     Active Substance: PIPERACILLIN SODIUM\TAZOBACTAM SODIUM
     Indication: CELLULITIS
     Dosage: 6.75 MILLIGRAM
     Route: 041
     Dates: start: 20180522, end: 20180614
  51. VORICONAZOLE. [Concomitant]
     Active Substance: VORICONAZOLE
     Dosage: 400 MILLIGRAM
     Route: 048
     Dates: start: 20180808, end: 20180917
  52. AEROVENT [Concomitant]
     Indication: DYSPNOEA
     Route: 055
     Dates: start: 20180802, end: 20180917
  53. TRITACE [Concomitant]
     Active Substance: RAMIPRIL
     Indication: HYPERTENSION
     Dosage: 2.5 MILLIGRAM
     Route: 048
  54. CALCILESS [Concomitant]
     Indication: HYPERBILIRUBINAEMIA
     Dosage: 6 TABLET
     Route: 048
     Dates: start: 20180805, end: 20180908
  55. VENOFER [Concomitant]
     Active Substance: IRON SUCROSE
     Indication: ANAEMIA
     Route: 041
     Dates: start: 20180821, end: 20180821
  56. GLYCERINE [Concomitant]
     Active Substance: GLYCERIN
     Indication: HAEMORRHOIDS
     Route: 054
     Dates: start: 20180906, end: 20180906

REACTIONS (1)
  - Soft tissue haemorrhage [Recovered/Resolved]

NARRATIVE: CASE EVENT DATE: 20180901
